FAERS Safety Report 8814875 (Version 1)
Quarter: 2012Q4

REPORT INFORMATION
  Report Type: 
  Country: US (occurrence: US)
  Receive Date: 20120928
  Receipt Date: 20120928
  Transmission Date: 20130627
  Serious: No
  Sender: FDA-Public Use
  Company Number: US-MUTUAL PHARMACEUTICAL COMPANY, INC.-QLQN20110004

PATIENT
  Age: 83 Year
  Sex: Male
  Weight: 70.37 kg

DRUGS (9)
  1. QUALAQUIN [Suspect]
     Indication: LEG CRAMPS
     Route: 048
     Dates: start: 20110807, end: 20110813
  2. ASPIRIN [Concomitant]
     Indication: ANTICOAGULANT THERAPY
     Route: 048
  3. AMLODIPINE [Concomitant]
     Indication: BLOOD PRESSURE HIGH
     Route: 048
  4. CALCITROL [Concomitant]
     Indication: DRUG USE FOR UNKNOWN INDICATION
     Route: 048
  5. FORADIL AEROLIZER [Concomitant]
     Indication: DRUG USE FOR UNKNOWN INDICATION
  6. METOPROLOL [Concomitant]
     Indication: BLOOD PRESSURE HIGH
     Route: 048
  7. COUMADIN [Concomitant]
     Indication: ANTICOAGULANT THERAPY
     Route: 048
  8. SIMVASTATIN [Concomitant]
     Indication: HIGH CHOLESTEROL
     Route: 048
  9. GABAPENTIN 300 MG [Concomitant]
     Indication: LEG CRAMPS
     Route: 048

REACTIONS (5)
  - Decreased appetite [Recovered/Resolved]
  - Malaise [Recovered/Resolved]
  - Lip swelling [Recovered/Resolved]
  - Off label use [Recovered/Resolved]
  - Rash papular [Recovered/Resolved]
